FAERS Safety Report 5566437-2 (Version None)
Quarter: 2007Q4

REPORT INFORMATION
  Report Type: 
  Country: None (occurrence: None)
  Receive Date: 20071218
  Receipt Date: 20071218
  Transmission Date: 20080405
  Serious: Yes (Other)
  Sender: FDA-Public Use
  Company Number: None

PATIENT
  Sex: Female
  Weight: 81.6475 kg

DRUGS (1)
  1. CHANTIX [Suspect]
     Indication: SMOKING CESSATION THERAPY
     Dosage: SINGLE .05 MG  ONCE A DAY  PO
     Route: 048
     Dates: start: 20071210, end: 20071214

REACTIONS (16)
  - ANXIETY [None]
  - BLOOD GLUCOSE INCREASED [None]
  - CONFUSIONAL STATE [None]
  - CONVULSION [None]
  - DIARRHOEA [None]
  - DRUG LEVEL BELOW THERAPEUTIC [None]
  - FLATULENCE [None]
  - INCREASED APPETITE [None]
  - MALAISE [None]
  - NAUSEA [None]
  - NIGHTMARE [None]
  - PANIC ATTACK [None]
  - SMOKER [None]
  - TIC [None]
  - VISUAL DISTURBANCE [None]
  - VOMITING [None]
